FAERS Safety Report 7239189-8 (Version None)
Quarter: 2011Q1

REPORT INFORMATION
  Report Type: 
  Country: None (occurrence: None)
  Receive Date: 20110121
  Receipt Date: 20110111
  Transmission Date: 20110831
  Serious: Yes (Hospitalization, Other)
  Sender: FDA-Public Use
  Company Number: US-NAPPMUNDI-USA-2010-0043476

PATIENT
  Sex: Female
  Weight: 61.224 kg

DRUGS (3)
  1. SEROQUEL [Concomitant]
     Indication: PRODUCT USED FOR UNKNOWN INDICATION
     Dosage: 50 MG, DAILY
  2. ZOLOFT [Concomitant]
     Indication: PRODUCT USED FOR UNKNOWN INDICATION
     Dosage: 100 MG, BID
  3. OXYCONTIN [Suspect]
     Indication: PAIN
     Dosage: 80 MG, TID

REACTIONS (2)
  - CARDIAC FAILURE [None]
  - PALPITATIONS [None]
